FAERS Safety Report 10158694 (Version 2)
Quarter: 2014Q2

REPORT INFORMATION
  Report Type: Spontaneous
  Country: US (occurrence: US)
  Receive Date: 20140508
  Receipt Date: 20140508
  Transmission Date: 20141212
  Serious: No
  Sender: FDA-Public Use
  Company Number: US-TEVA-408420USA

PATIENT
  Age: 28 Year
  Sex: Female

DRUGS (1)
  1. CLARAVIS [Suspect]
     Dates: start: 20130521, end: 20130522

REACTIONS (6)
  - Feeling hot [Unknown]
  - Dizziness [Unknown]
  - Nausea [Recovered/Resolved]
  - Insomnia [Unknown]
  - Dizziness [Recovered/Resolved]
  - Presyncope [Unknown]
